FAERS Safety Report 10575818 (Version 1)
Quarter: 2014Q4

REPORT INFORMATION
  Report Type: Spontaneous
  Country: US (occurrence: None)
  Receive Date: 20141110
  Receipt Date: 20141110
  Transmission Date: 20150529
  Serious: Yes (Hospitalization, Disabling)
  Sender: FDA-Public Use
  Company Number: None

PATIENT
  Age: 39 Year
  Sex: Male
  Weight: 90.72 kg

DRUGS (1)
  1. REMICADE [Suspect]
     Active Substance: INFLIXIMAB
     Indication: PSORIATIC ARTHROPATHY
     Dosage: Q 6 WEEKS INFUSION, INTO A VEIN
     Dates: start: 20140203, end: 20141106

REACTIONS (7)
  - Fibula fracture [None]
  - Arthralgia [None]
  - Ankle fracture [None]
  - Foot fracture [None]
  - Fracture [None]
  - Fracture nonunion [None]
  - Tibia fracture [None]

NARRATIVE: CASE EVENT DATE: 20141104
